FAERS Safety Report 4404553-9 (Version None)
Quarter: 2004Q3

REPORT INFORMATION
  Report Type: 
  Country: None (occurrence: None)
  Receive Date: 20040722
  Receipt Date: 20040715
  Transmission Date: 20050211
  Serious: Yes (Life-Threatening)
  Sender: FDA-Public Use
  Company Number: 200415359US

PATIENT
  Age: 86 Year
  Sex: Female

DRUGS (1)
  1. LOVENOX [Suspect]
     Indication: HIP SURGERY
     Route: 058
     Dates: start: 20040630

REACTIONS (4)
  - CEREBROVASCULAR ACCIDENT [None]
  - MUSCLE SPASTICITY [None]
  - POST PROCEDURAL COMPLICATION [None]
  - REFUSAL OF TREATMENT BY RELATIVE [None]
